FAERS Safety Report 25665113 (Version 1)
Quarter: 2025Q3

REPORT INFORMATION
  Report Type: Spontaneous
  Country: US (occurrence: None)
  Receive Date: 20250809
  Receipt Date: 20250809
  Transmission Date: 20251021
  Serious: No
  Sender: FDA-CTU
  Company Number: None

PATIENT
  Age: 63 Year
  Sex: Female
  Weight: 71.1 kg

DRUGS (6)
  1. SAPHNELO [Suspect]
     Active Substance: ANIFROLUMAB-FNIA
     Indication: Systemic lupus erythematosus
     Route: 042
     Dates: start: 20250722
  2. URSO FORTE [Concomitant]
     Active Substance: URSODIOL
  3. PLAQUENIL [Concomitant]
     Active Substance: HYDROXYCHLOROQUINE SULFATE
  4. FARXIGA [Concomitant]
     Active Substance: DAPAGLIFLOZIN PROPANEDIOL
  5. VITAMIN D NOS [Concomitant]
     Active Substance: CHOLECALCIFEROL\ERGOCALCIFEROL
  6. SAPHNELO [Concomitant]
     Active Substance: ANIFROLUMAB-FNIA

REACTIONS (3)
  - Arthralgia [None]
  - Pain [None]
  - Therapy cessation [None]

NARRATIVE: CASE EVENT DATE: 20250723
